FAERS Safety Report 23772235 (Version 1)
Quarter: 2024Q2

REPORT INFORMATION
  Report Type: Spontaneous
  Country: US (occurrence: US)
  Receive Date: 20240423
  Receipt Date: 20240423
  Transmission Date: 20240716
  Serious: No
  Sender: FDA-Public Use
  Company Number: US-ALCON LABORATORIES-ALC2023US001709

PATIENT
  Sex: Female

DRUGS (1)
  1. TETRACAINE HCL [Suspect]
     Active Substance: TETRACAINE HYDROCHLORIDE
     Indication: Product used for unknown indication
     Route: 047

REACTIONS (1)
  - Hypersensitivity [Unknown]
